FAERS Safety Report 7634323-X (Version None)
Quarter: 2011Q3

REPORT INFORMATION
  Report Type: 
  Country: None (occurrence: None)
  Receive Date: 20110725
  Receipt Date: 20110718
  Transmission Date: 20111222
  Serious: Yes (Other)
  Sender: FDA-Public Use
  Company Number: DE-PFIZER INC-2011162126

PATIENT
  Sex: Male

DRUGS (3)
  1. MIRTAZAPINE [Interacting]
  2. ZIPRASIDONE HYDROCHLORIDE [Interacting]
     Dosage: 40 MG, 2X/DAY
  3. ZIPRASIDONE HYDROCHLORIDE [Suspect]
     Dosage: 20 MG, 2X/DAY

REACTIONS (3)
  - AKATHISIA [None]
  - DRUG INTERACTION [None]
  - WEIGHT INCREASED [None]
